FAERS Safety Report 7874206-3 (Version None)
Quarter: 2011Q4

REPORT INFORMATION
  Report Type: 
  Country: None (occurrence: None)
  Receive Date: 20111030
  Receipt Date: 20110517
  Transmission Date: 20120403
  Serious: No
  Sender: FDA-Public Use
  Company Number: US-AMGEN-USASP2011025467

PATIENT
  Age: 20 Year
  Sex: Male

DRUGS (2)
  1. ENBREL [Suspect]
     Indication: RHEUMATOID ARTHRITIS
     Dosage: UNK
     Dates: start: 20110301
  2. METHOTREXATE [Concomitant]
     Dosage: UNK
     Dates: start: 20110101

REACTIONS (3)
  - TOOTH EXTRACTION [None]
  - DRUG INEFFECTIVE [None]
  - TOOTH INFECTION [None]
